FAERS Safety Report 7957841-3 (Version None)
Quarter: 2011Q4

REPORT INFORMATION
  Report Type: 
  Country: None (occurrence: None)
  Receive Date: 20111205
  Receipt Date: 20111125
  Transmission Date: 20120403
  Serious: Yes (Hospitalization)
  Sender: FDA-Public Use
  Company Number: DK-ASTRAZENECA-2011SE71768

PATIENT
  Age: 25514 Day
  Sex: Male
  Weight: 62 kg

DRUGS (16)
  1. FOLININSYRE [Concomitant]
     Indication: DIALYSIS
     Route: 048
  2. MOVIPREP [Concomitant]
     Indication: CONSTIPATION
     Dosage: DOSIS: 1 X 1
     Route: 048
  3. COZAAR [Concomitant]
     Indication: HYPERTENSION
     Route: 048
  4. FENYTOIN ^DAK^ [Concomitant]
     Indication: STATUS EPILEPTICUS
     Route: 048
  5. CLONAZEPAM [Concomitant]
     Route: 048
  6. WARFARIN SODIUM [Concomitant]
     Indication: ANTICOAGULANT THERAPY
  7. IMOCLONE [Concomitant]
     Indication: INSOMNIA
     Route: 048
  8. ACETAMINOPHEN [Concomitant]
     Indication: PAIN
  9. RENAGEL [Concomitant]
     Indication: HYPERPHOSPHATAEMIA
     Route: 048
  10. DIGOXIN [Concomitant]
     Indication: ARRHYTHMIA
  11. ETALPHA [Concomitant]
     Indication: VITAMIN D DEFICIENCY
     Route: 048
  12. CARVEDILOL [Concomitant]
     Indication: CARDIAC DISORDER
     Route: 048
  13. ASCORBINSYRE [Concomitant]
     Indication: SUPPLEMENTATION THERAPY
  14. SEROQUEL [Suspect]
     Indication: DEPRESSION
     Route: 048
  15. ESCITALOPRAM [Concomitant]
     Indication: DEPRESSION
     Route: 048
  16. ACTILAX [Concomitant]
     Indication: CONSTIPATION
     Dosage: 7.5 MG/ML /DAILY
     Route: 048

REACTIONS (2)
  - DEPRESSED LEVEL OF CONSCIOUSNESS [None]
  - CONFUSIONAL STATE [None]
